FAERS Safety Report 17097066 (Version 1)
Quarter: 2019Q4

REPORT INFORMATION
  Report Type: Spontaneous
  Country: US (occurrence: US)
  Receive Date: 20191105
  Receipt Date: 20191105
  Transmission Date: 20200122
  Serious: Yes (Life-Threatening)
  Sender: FDA-Public Use
  Company Number: None

PATIENT
  Age: 56 Year
  Sex: Male

DRUGS (1)
  1. SUCCINYLCHOLINE [Suspect]
     Active Substance: SUCCINYLCHOLINE
     Indication: BIPOLAR DISORDER
     Route: 042
     Dates: start: 20190809, end: 20190809

REACTIONS (4)
  - Hypertension [None]
  - Tachycardia [None]
  - Heart rate increased [None]
  - Muscle contractions involuntary [None]

NARRATIVE: CASE EVENT DATE: 20190809
